FAERS Safety Report 23064288 (Version 7)
Quarter: 2024Q1

REPORT INFORMATION
  Report Type: Report from Study
  Country: US (occurrence: US)
  Receive Date: 20231013
  Receipt Date: 20240216
  Transmission Date: 20240410
  Serious: Yes (Hospitalization, Other)
  Sender: FDA-Public Use
  Company Number: US-ARGENX-2022-ARGX-US000861

PATIENT

DRUGS (5)
  1. VYVGART [Suspect]
     Active Substance: EFGARTIGIMOD ALFA-FCAB
     Indication: Myasthenia gravis
     Dosage: UNK
     Route: 042
     Dates: start: 202204
  2. VYVGART [Suspect]
     Active Substance: EFGARTIGIMOD ALFA-FCAB
     Dosage: UNK
     Route: 042
     Dates: start: 20221001
  3. COVID-19 vaccine [Concomitant]
     Indication: Product used for unknown indication
     Dosage: UNK
     Route: 065
  4. MESTINON [Concomitant]
     Active Substance: PYRIDOSTIGMINE BROMIDE
     Indication: Product used for unknown indication
     Dosage: UNK
     Route: 065
     Dates: start: 202201
  5. PREDNISONE [Concomitant]
     Active Substance: PREDNISONE
     Indication: Product used for unknown indication
     Dosage: UNK
     Route: 065
     Dates: start: 202201

REACTIONS (35)
  - Hemiparesis [Unknown]
  - Respiratory distress [Unknown]
  - Chronic kidney disease [Not Recovered/Not Resolved]
  - Fall [Unknown]
  - Muscular weakness [Unknown]
  - Fall [Recovering/Resolving]
  - Ligament injury [Recovering/Resolving]
  - Fall [Unknown]
  - Chest discomfort [Recovered/Resolved]
  - Depressed mood [Recovered/Resolved]
  - Mastication disorder [Recovered/Resolved]
  - Speech disorder [Recovered/Resolved]
  - Mood altered [Recovered/Resolved]
  - Muscular weakness [Not Recovered/Not Resolved]
  - Myasthenia gravis [Unknown]
  - Head injury [Unknown]
  - Memory impairment [Unknown]
  - Salivary hypersecretion [Unknown]
  - Somnolence [Not Recovered/Not Resolved]
  - Balance disorder [Unknown]
  - Muscle spasms [Unknown]
  - Asthenopia [Not Recovered/Not Resolved]
  - Feeling hot [Not Recovered/Not Resolved]
  - Disorientation [Not Recovered/Not Resolved]
  - SARS-CoV-2 test positive [Unknown]
  - Dysphagia [Unknown]
  - Asthenia [Unknown]
  - Dyspnoea [Not Recovered/Not Resolved]
  - Fatigue [Recovered/Resolved]
  - Asthenia [Unknown]
  - Headache [Unknown]
  - Headache [Recovered/Resolved]
  - Procedural headache [Recovered/Resolved]
  - Speech disorder [Not Recovered/Not Resolved]
  - Muscle fatigue [Not Recovered/Not Resolved]

NARRATIVE: CASE EVENT DATE: 20220502
